FAERS Safety Report 16392339 (Version 1)
Quarter: 2019Q2

REPORT INFORMATION
  Report Type: Spontaneous
  Country: US (occurrence: US)
  Receive Date: 20190605
  Receipt Date: 20190605
  Transmission Date: 20190711
  Serious: Yes (Hospitalization)
  Sender: FDA-Public Use
  Company Number: US-BAUSCH-BL-2019-015906

PATIENT
  Age: 29 Year
  Sex: Male

DRUGS (3)
  1. D-PENICILLAMINE [Suspect]
     Active Substance: PENICILLAMINE
     Indication: HEPATO-LENTICULAR DEGENERATION
     Route: 048
  2. D-PENICILLAMINE [Suspect]
     Active Substance: PENICILLAMINE
     Dosage: DOSE WAS TITRATED, OVER A PERIOD OF TWO WEEKS
     Route: 048
  3. ZINC. [Suspect]
     Active Substance: ZINC
     Indication: HEPATO-LENTICULAR DEGENERATION
     Route: 065

REACTIONS (1)
  - Neutropenia [Recovering/Resolving]
